FAERS Safety Report 5342020-9 (Version None)
Quarter: 2007Q2

REPORT INFORMATION
  Report Type: 
  Country: None (occurrence: None)
  Receive Date: 20070601
  Receipt Date: 20070529
  Transmission Date: 20071010
  Serious: Yes (Hospitalization)
  Sender: FDA-Public Use
  Company Number: FR-AVENTIS-200711806FR

PATIENT
  Age: 73 Year
  Sex: Male

DRUGS (8)
  1. ANANDRON [Suspect]
     Route: 048
     Dates: start: 20061101, end: 20070224
  2. DIGOXIN [Concomitant]
     Indication: DRUG USE FOR UNKNOWN INDICATION
  3. COUMADIN [Concomitant]
     Indication: DRUG USE FOR UNKNOWN INDICATION
  4. SOTALOL HYDROCHLORIDE [Concomitant]
     Indication: DRUG USE FOR UNKNOWN INDICATION
  5. ZESTORETIC [Concomitant]
     Indication: DRUG USE FOR UNKNOWN INDICATION
  6. PARIET [Concomitant]
     Indication: DRUG USE FOR UNKNOWN INDICATION
  7. ZANIDIP [Concomitant]
     Indication: DRUG USE FOR UNKNOWN INDICATION
  8. ELIGARD [Concomitant]
     Indication: DRUG USE FOR UNKNOWN INDICATION

REACTIONS (4)
  - DYSPNOEA [None]
  - HAEMOPTYSIS [None]
  - PNEUMONITIS [None]
  - PYREXIA [None]
